FAERS Safety Report 5150596-X (Version None)
Quarter: 2006Q4

REPORT INFORMATION
  Report Type: 
  Country: None (occurrence: None)
  Receive Date: 20061114
  Receipt Date: 20060601
  Transmission Date: 20070319
  Serious: Yes (Death)
  Sender: FDA-Public Use
  Company Number: EE-BRISTOL-MYERS SQUIBB COMPANY-13397773

PATIENT
  Age: 51 Year
  Sex: Male
  Weight: 58 kg

DRUGS (8)
  1. ATAZANAVIR [Suspect]
     Indication: HIV INFECTION
     Route: 048
     Dates: start: 20060509, end: 20060601
  2. RITONAVIR [Suspect]
     Indication: HIV INFECTION
     Route: 048
     Dates: start: 20060509, end: 20060601
  3. ZIDOVUDINE [Suspect]
     Dates: start: 20060509, end: 20060601
  4. LAMIVUDINE [Concomitant]
     Dates: start: 20060509, end: 20060601
  5. AMOXICILLIN [Concomitant]
     Dates: start: 20060413, end: 20060505
  6. DICLOFENAC [Concomitant]
     Dates: start: 20060417, end: 20060426
  7. ACETAMINOPHEN [Concomitant]
     Dates: start: 20060425, end: 20060502
  8. ZOPICLONE [Concomitant]
     Dates: start: 20060419, end: 20060508

REACTIONS (25)
  - ANAEMIA [None]
  - ASTHENIA [None]
  - BLOOD PRESSURE DECREASED [None]
  - DEHYDRATION [None]
  - DRUG INEFFECTIVE [None]
  - GALLBLADDER DISORDER [None]
  - GASTROENTERITIS [None]
  - GASTROINTESTINAL HAEMORRHAGE [None]
  - GENERAL PHYSICAL HEALTH DETERIORATION [None]
  - HEPATITIS TOXIC [None]
  - HEPATORENAL FAILURE [None]
  - INTESTINAL SPASM [None]
  - LEUKOPENIA [None]
  - LIVER PALPABLE SUBCOSTAL [None]
  - LUNG INFECTION PSEUDOMONAL [None]
  - MULTI-ORGAN FAILURE [None]
  - PANCREATITIS [None]
  - PANCYTOPENIA [None]
  - PNEUMONIA [None]
  - RENAL DISORDER [None]
  - RESPIRATORY FAILURE [None]
  - THERAPY NON-RESPONDER [None]
  - THROMBOCYTOPENIA [None]
  - TONGUE BLACK HAIRY [None]
  - TONGUE DRY [None]
